FAERS Safety Report 13394110 (Version 8)
Quarter: 2017Q4

REPORT INFORMATION
  Report Type: Report from Study
  Country: None (occurrence: US)
  Receive Date: 20170401
  Receipt Date: 20171108
  Transmission Date: 20180320
  Serious: Yes (Other)
  Sender: FDA-Public Use
  Company Number: US-ABBVIE-17K-163-1874372-00

PATIENT
  Sex: Female
  Weight: 64.47 kg

DRUGS (6)
  1. PREDNISONE. [Suspect]
     Active Substance: PREDNISONE
     Indication: NERVE INJURY
     Route: 065
     Dates: start: 2016, end: 2016
  2. LISINOPRIL. [Concomitant]
     Active Substance: LISINOPRIL
     Indication: HYPERTENSION
     Dates: start: 201702
  3. HUMIRA [Suspect]
     Active Substance: ADALIMUMAB
     Route: 058
  4. PREDNISONE. [Suspect]
     Active Substance: PREDNISONE
     Route: 065
     Dates: start: 2017, end: 201709
  5. HUMIRA [Suspect]
     Active Substance: ADALIMUMAB
     Indication: CROHN^S DISEASE
     Route: 058
     Dates: start: 20160705, end: 20170801
  6. HUMIRA [Suspect]
     Active Substance: ADALIMUMAB
     Route: 058

REACTIONS (11)
  - Bone giant cell tumour benign [Recovered/Resolved]
  - Hypertension [Unknown]
  - Hypersensitivity [Recovered/Resolved]
  - Nerve injury [Not Recovered/Not Resolved]
  - Paraesthesia [Recovering/Resolving]
  - Pancreatitis relapsing [Recovered/Resolved]
  - Drug ineffective [Recovered/Resolved]
  - Hypoaesthesia [Recovering/Resolving]
  - Morton^s neuralgia [Unknown]
  - Tremor [Recovering/Resolving]
  - Gait disturbance [Recovering/Resolving]

NARRATIVE: CASE EVENT DATE: 2017
